FAERS Safety Report 15487582 (Version 1)
Quarter: 2018Q4

REPORT INFORMATION
  Report Type: Spontaneous
  Country: US (occurrence: US)
  Receive Date: 20181003
  Receipt Date: 20181003
  Transmission Date: 20190205
  Serious: Yes (Other)
  Sender: FDA-Public Use
  Company Number: None

PATIENT
  Age: 57 Year
  Sex: Female
  Weight: 122.47 kg

DRUGS (1)
  1. BUPRENORPHINE/NALOXONE TABLETS, 8-2 MG [Suspect]
     Active Substance: BUPRENORPHINE\NALOXONE
     Dates: start: 20180422, end: 20181003

REACTIONS (1)
  - Headache [None]

NARRATIVE: CASE EVENT DATE: 20180422
